FAERS Safety Report 8134334-4 (Version None)
Quarter: 2012Q1

REPORT INFORMATION
  Report Type: 
  Country: None (occurrence: None)
  Receive Date: 20120103
  Receipt Date: 20111109
  Transmission Date: 20120608
  Serious: No
  Sender: FDA-Public Use
  Company Number: AE-2011-003294

PATIENT
  Age: 63 Year
  Sex: Female
  Weight: 68.0396 kg

DRUGS (7)
  1. PEGINTERFERON (PEGINTERFERON ALFA-2A) [Concomitant]
  2. RIBAVIRIN [Concomitant]
  3. ASPIRIN [Concomitant]
  4. LEVOTHYROXINE SODIUM [Concomitant]
  5. IBUPROFEN (ADVIL) [Concomitant]
  6. INCIVEK [Suspect]
     Dosage: 2250 MG (750 MG, 1 IN 8 HR), ORAL
     Route: 048
     Dates: start: 20110927
  7. ACETAMINOPHEN [Concomitant]

REACTIONS (6)
  - NAUSEA [None]
  - ANAEMIA [None]
  - DRUG ADMINISTRATION ERROR [None]
  - ANXIETY [None]
  - EATING DISORDER [None]
  - PYREXIA [None]
